FAERS Safety Report 5660563-5 (Version None)
Quarter: 2008Q1

REPORT INFORMATION
  Report Type: 
  Country: None (occurrence: None)
  Receive Date: 20080311
  Receipt Date: 20071119
  Transmission Date: 20080703
  Serious: No
  Sender: FDA-Public Use
  Company Number: US-BAYER-200713858BCC

PATIENT
  Age: 43 Year
  Sex: Female
  Weight: 66 kg

DRUGS (2)
  1. ALEVE [Suspect]
     Indication: DRUG USE FOR UNKNOWN INDICATION
     Dosage: TOTAL DAILY DOSE: 550 MG  UNIT DOSE: 220 MG
     Route: 048
     Dates: start: 20071117, end: 20071118
  2. ALEVE [Suspect]
     Route: 048
     Dates: start: 20071119

REACTIONS (2)
  - HEADACHE [None]
  - NAUSEA [None]
